FAERS Safety Report 4601551-7 (Version None)
Quarter: 2005Q1

REPORT INFORMATION
  Report Type: 
  Country: None (occurrence: None)
  Receive Date: 20050131
  Receipt Date: 20041110
  Transmission Date: 20050727
  Serious: No
  Sender: FDA-Public Use
  Company Number: 200418694US

PATIENT
  Age: 72 Year
  Sex: Female

DRUGS (7)
  1. KETEK [Suspect]
     Indication: UPPER RESPIRATORY TRACT INFECTION
     Dosage: 800 MG QD PO
     Route: 048
     Dates: start: 20040917, end: 20040923
  2. LORATADINE (CLARITIN) [Concomitant]
  3. LEVOTHYROXINE SODIUM (LEVOTHYROID) [Concomitant]
  4. ESTROGENS CONJUGATED (PREMARIN) [Concomitant]
  5. MONTELUKAST SODIUM [Concomitant]
  6. FLUTICASONE PROPIONATE (FLOVENT) [Concomitant]
  7. MULTI-VITAMIN [Concomitant]

REACTIONS (1)
  - DIARRHOEA [None]
